FAERS Safety Report 5160184-7 (Version None)
Quarter: 2006Q4

REPORT INFORMATION
  Report Type: 
  Country: None (occurrence: None)
  Receive Date: 20061129
  Receipt Date: 20061122
  Transmission Date: 20070319
  Serious: Yes (Other)
  Sender: FDA-Public Use
  Company Number: US-JNJFOC-20060905557

PATIENT
  Sex: Female
  Weight: 64.86 kg

DRUGS (5)
  1. REMICADE [Suspect]
     Dosage: 20 INFUSIONS RECEIVED
     Route: 042
  2. REMICADE [Suspect]
     Dosage: 20 INFUSIONS RECEIVED
     Route: 042
  3. REMICADE [Suspect]
     Dosage: 20 INFUSIONS RECEIVED
     Route: 042
  4. REMICADE [Suspect]
     Indication: RHEUMATOID ARTHRITIS
     Dosage: 20 INFUSIONS RECEIVED
     Route: 042
  5. METHOTREXATE [Concomitant]
     Indication: RHEUMATOID ARTHRITIS

REACTIONS (1)
  - HODGKIN'S DISEASE NODULAR SCLEROSIS STAGE UNSPECIFIED [None]
